FAERS Safety Report 9224295 (Version 1)
Quarter: 2013Q1

REPORT INFORMATION
  Report Type: Spontaneous
  Country: US (occurrence: US)
  Receive Date: 20120914
  Receipt Date: 20120914
  Transmission Date: 20140127
  Serious: Yes (Other)
  Sender: FDA-Public Use
  Company Number: JPI-P-022309

PATIENT
  Age: 39 Year
  Sex: Male
  Weight: 72.12 kg

DRUGS (4)
  1. XYREM (500 MG/ML SOLUTION)(SODIUM OXYBATE) [Suspect]
     Indication: HYPERSOMNIA
     Dosage: 2 DOSES OF 2.25 GM TAKEN NIGHTLY/AT BEDTIME.
     Route: 048
     Dates: start: 20120423, end: 2012
  2. METHYLPHENIDATE [Suspect]
     Indication: SOMNOLENCE
     Dates: end: 201206
  3. VENLAFAXINE [Concomitant]
  4. LISDEXAMFETAMINE [Concomitant]

REACTIONS (3)
  - Tachycardia [None]
  - Blood pressure increased [None]
  - Somnolence [None]
